FAERS Safety Report 5944029-0 (Version None)
Quarter: 2008Q4

REPORT INFORMATION
  Report Type: 
  Country: None (occurrence: None)
  Receive Date: 20081106
  Receipt Date: 20081031
  Transmission Date: 20090506
  Serious: Yes (Other)
  Sender: FDA-Public Use
  Company Number: US-GENENTECH-268738

PATIENT
  Age: 61 Year
  Sex: Male

DRUGS (3)
  1. RITUXAN [Suspect]
     Indication: BURKITT'S LYMPHOMA
  2. DIPHENHYDRAMINE HCL [Concomitant]
     Indication: PREMEDICATION
  3. ACETAMINOPHEN [Concomitant]
     Indication: PREMEDICATION

REACTIONS (1)
  - ACUTE CORONARY SYNDROME [None]
